FAERS Safety Report 6413447-9 (Version None)
Quarter: 2009Q4

REPORT INFORMATION
  Report Type: 
  Country: None (occurrence: None)
  Receive Date: 20091026
  Receipt Date: 20091013
  Transmission Date: 20100525
  Serious: Yes (Hospitalization)
  Sender: FDA-Public Use
  Company Number: FR-CELGENEUS-056-20484-09100985

PATIENT
  Sex: Female

DRUGS (5)
  1. INNOHEP [Suspect]
     Indication: PULMONARY EMBOLISM
     Route: 058
     Dates: start: 20090920, end: 20090920
  2. CONTRAMAL [Suspect]
     Indication: DRUG USE FOR UNKNOWN INDICATION
     Route: 051
     Dates: start: 20090920, end: 20090920
  3. ZOPHREN [Suspect]
     Indication: NAUSEA
     Route: 051
     Dates: start: 20090920, end: 20090920
  4. PERFALGAN [Suspect]
     Indication: PAIN
     Route: 051
     Dates: start: 20090920, end: 20090920
  5. RINGER LAVOISIER [Concomitant]
     Indication: DRUG USE FOR UNKNOWN INDICATION
     Route: 051

REACTIONS (4)
  - HYPOAESTHESIA ORAL [None]
  - SWOLLEN TONGUE [None]
  - TONGUE OEDEMA [None]
  - TONGUE PARALYSIS [None]
